APPROVED DRUG PRODUCT: FLECAINIDE ACETATE
Active Ingredient: FLECAINIDE ACETATE
Strength: 150MG
Dosage Form/Route: TABLET;ORAL
Application: A079164 | Product #003
Applicant: CHARTWELL LIFE MOLECULES LLC
Approved: Jul 9, 2009 | RLD: No | RS: No | Type: DISCN